FAERS Safety Report 6853482-X (Version None)
Quarter: 2010Q3

REPORT INFORMATION
  Report Type: 
  Country: None (occurrence: None)
  Receive Date: 20100717
  Receipt Date: 20080112
  Transmission Date: 20110219
  Serious: No
  Sender: FDA-Public Use
  Company Number: US-PFIZER INC-2007103585

PATIENT
  Sex: Female
  Weight: 50.8 kg

DRUGS (2)
  1. CHANTIX [Suspect]
     Indication: SMOKING CESSATION THERAPY
     Dates: start: 20071027, end: 20071118
  2. YASMIN [Concomitant]
     Indication: CONTRACEPTION

REACTIONS (9)
  - ABNORMAL BEHAVIOUR [None]
  - ABNORMAL DREAMS [None]
  - AGGRESSION [None]
  - ANOSMIA [None]
  - ANXIETY [None]
  - FLATULENCE [None]
  - HYPOGEUSIA [None]
  - MOOD ALTERED [None]
  - NERVOUSNESS [None]
